FAERS Safety Report 13386965 (Version 1)
Quarter: 2017Q1

REPORT INFORMATION
  Report Type: Spontaneous
  Country: US (occurrence: US)
  Receive Date: 20170330
  Receipt Date: 20170330
  Transmission Date: 20170429
  Serious: Yes (Hospitalization)
  Sender: FDA-Public Use
  Company Number: US-PFIZER INC-2017139009

PATIENT
  Age: 55 Year
  Sex: Female
  Weight: 64 kg

DRUGS (13)
  1. LYRICA [Suspect]
     Active Substance: PREGABALIN
     Indication: PELVIC FRACTURE
  2. LYRICA [Suspect]
     Active Substance: PREGABALIN
     Indication: HIP FRACTURE
  3. CALCIUM [Concomitant]
     Active Substance: CALCIUM
  4. LYRICA [Suspect]
     Active Substance: PREGABALIN
     Indication: SPINAL COLUMN STENOSIS
     Dosage: 2 DF, DAILY
     Route: 048
  5. LYRICA [Suspect]
     Active Substance: PREGABALIN
     Indication: SPINAL DISORDER
     Dosage: 50 MG, 3X/DAY
     Route: 048
  6. NAPROSYN [Concomitant]
     Active Substance: NAPROXEN
     Indication: ARTHRITIS
     Dosage: 550 MG, 2X/WEEK
     Dates: start: 201610
  7. CARVEDILOL. [Concomitant]
     Active Substance: CARVEDILOL
     Indication: BLOOD PRESSURE ABNORMAL
     Dosage: 6.25 MG, 2X/DAY
     Dates: start: 201606
  8. ALENDRONATE [Concomitant]
     Active Substance: ALENDRONATE SODIUM
     Indication: OSTEOPOROSIS
     Dosage: 35 MG, WEEKLY, ON FRIDAY
  9. CITALOPRAM [Concomitant]
     Active Substance: CITALOPRAM HYDROBROMIDE
     Indication: DEPRESSION
     Dosage: 20 MG, 1X/DAY, IN MORNING
     Dates: start: 201612
  10. SYMBICORT [Concomitant]
     Active Substance: BUDESONIDE\FORMOTEROL FUMARATE DIHYDRATE
     Indication: ASTHMA
     Dosage: 160/4.5, ONE INHALATION EVERY 12 HOURS
     Route: 055
     Dates: start: 201701
  11. CYCLOBENZAPRINE [Concomitant]
     Active Substance: CYCLOBENZAPRINE
     Indication: MUSCLE RELAXANT THERAPY
     Dosage: 10 MG, AS NEEDED
     Dates: start: 201610
  12. VITAMIN D3 [Concomitant]
     Active Substance: CHOLECALCIFEROL
  13. LYRICA [Suspect]
     Active Substance: PREGABALIN
     Indication: SCIATICA
     Dosage: 1 DF, 1X/DAY
     Route: 048
     Dates: start: 2016

REACTIONS (2)
  - Transient ischaemic attack [Recovering/Resolving]
  - Fall [Unknown]

NARRATIVE: CASE EVENT DATE: 20170322
